FAERS Safety Report 8665373 (Version 6)
Quarter: 2014Q3

REPORT INFORMATION
  Report Type: Spontaneous
  Country: US (occurrence: US)
  Receive Date: 20120716
  Receipt Date: 20140716
  Transmission Date: 20150326
  Serious: Yes (Hospitalization, Other)
  Sender: FDA-Public Use
  Company Number: US-009507513-2011SP046637

PATIENT
  Sex: Female
  Weight: 90.72 kg

DRUGS (2)
  1. VITAMINS (UNSPECIFIED) [Concomitant]
     Active Substance: VITAMINS
     Indication: NUTRITIONAL SUPPLEMENTATION
     Dosage: UNK UNK, QD
  2. NUVARING [Suspect]
     Active Substance: ETHINYL ESTRADIOL\ETONOGESTREL
     Indication: CONTRACEPTION
     Dosage: UNK
     Dates: start: 200901, end: 200910

REACTIONS (18)
  - Fear [Not Recovered/Not Resolved]
  - Depression [Not Recovered/Not Resolved]
  - Breast cellulitis [Not Recovered/Not Resolved]
  - Breast inflammation [Unknown]
  - Dyspareunia [Unknown]
  - Pulmonary embolism [Recovered/Resolved with Sequelae]
  - Anxiety [Not Recovered/Not Resolved]
  - Oedema peripheral [Not Recovered/Not Resolved]
  - Pain in extremity [Unknown]
  - Weight increased [Unknown]
  - Breast abscess [Unknown]
  - Vaginal haemorrhage [Unknown]
  - Cervical dysplasia [Unknown]
  - Breast abscess [Not Recovered/Not Resolved]
  - Deep vein thrombosis [Recovered/Resolved]
  - Menorrhagia [Unknown]
  - Mastitis [Not Recovered/Not Resolved]
  - Dermatitis [Unknown]

NARRATIVE: CASE EVENT DATE: 2009
